FAERS Safety Report 6556534-7 (Version None)
Quarter: 2010Q1

REPORT INFORMATION
  Report Type: 
  Country: None (occurrence: None)
  Receive Date: 20100128
  Receipt Date: 20100116
  Transmission Date: 20100710
  Serious: Yes (Hospitalization, Other)
  Sender: FDA-Public Use
  Company Number: US-PFIZER INC-2006074542

PATIENT
  Sex: Male
  Weight: 127.01 kg

DRUGS (14)
  1. NEURONTIN [Suspect]
     Indication: NEUROPATHY PERIPHERAL
     Dosage: UNK
     Route: 065
  2. LYRICA [Suspect]
     Indication: NEUROPATHY PERIPHERAL
     Dosage: 50 MG, UNK
     Route: 065
     Dates: start: 20060101
  3. LEVAQUIN [Concomitant]
     Route: 065
  4. CELEXA [Concomitant]
     Route: 065
  5. OXYCODONE [Concomitant]
     Route: 065
  6. ATENOLOL [Concomitant]
     Route: 065
  7. LASIX [Concomitant]
     Route: 065
  8. ECOTRIN [Concomitant]
     Route: 065
  9. PLAVIX [Concomitant]
     Route: 065
  10. SULAR [Concomitant]
     Route: 065
  11. ULTRAM [Concomitant]
     Route: 065
  12. ACIPHEX [Concomitant]
     Route: 065
  13. ZETIA [Concomitant]
     Route: 065
  14. POTASSIUM [Concomitant]
     Route: 065

REACTIONS (11)
  - ACCIDENT [None]
  - DIARRHOEA [None]
  - DRY MOUTH [None]
  - FAECAL INCONTINENCE [None]
  - FLATULENCE [None]
  - MEMORY IMPAIRMENT [None]
  - NEUROPATHY PERIPHERAL [None]
  - PLATELET COUNT DECREASED [None]
  - PNEUMONIA [None]
  - VISION BLURRED [None]
  - WEIGHT INCREASED [None]
